FAERS Safety Report 5913610-7 (Version None)
Quarter: 2008Q4

REPORT INFORMATION
  Report Type: 
  Country: None (occurrence: None)
  Receive Date: 20081006
  Receipt Date: 20080922
  Transmission Date: 20090506
  Serious: Yes (Other)
  Sender: FDA-Public Use
  Company Number: 239063J08USA

PATIENT
  Age: 34 Year
  Sex: Female
  Weight: 83 kg

DRUGS (4)
  1. REBIF [Suspect]
     Indication: MULTIPLE SCLEROSIS
     Dosage: 22 MCG, 3 IN 1 WEEKS, SUBCUTANEOUS
     Route: 058
     Dates: start: 20070105
  2. GLUCOPHAGE [Concomitant]
  3. TRAZODONE HCL [Concomitant]
  4. SPIRONOLACTONE [Concomitant]

REACTIONS (1)
  - DIABETES MELLITUS [None]
